FAERS Safety Report 23342167 (Version 1)
Quarter: 2023Q4

REPORT INFORMATION
  Report Type: Report from Study
  Country: NL (occurrence: NL)
  Receive Date: 20231227
  Receipt Date: 20231227
  Transmission Date: 20240110
  Serious: Yes (Death)
  Sender: FDA-Public Use
  Company Number: NL-MYLANLABS-2020M1095299

PATIENT
  Age: 61 Year
  Sex: Male

DRUGS (7)
  1. CREON [Suspect]
     Active Substance: PANCRELIPASE AMYLASE\PANCRELIPASE LIPASE\PANCRELIPASE PROTEASE
     Indication: Pancreatic carcinoma
     Dosage: 1-8 TIMES A DAY WITH A MAXIMUM OF 400.000 A DAY?FORM STRENGTH: 300 MILLIGRAMS?25000
     Route: 048
     Dates: start: 20200917, end: 20201112
  2. CREON [Suspect]
     Active Substance: PANCRELIPASE AMYLASE\PANCRELIPASE LIPASE\PANCRELIPASE PROTEASE
     Indication: Pancreatic carcinoma
     Dosage: FORM STRENGTH: 150 MILLIGRAMS?10000
     Route: 048
     Dates: start: 20200917, end: 20201112
  3. NEXIUM [Concomitant]
     Active Substance: ESOMEPRAZOLE MAGNESIUM
     Indication: Product used for unknown indication
     Dosage: 15 ST 1.1ZK?FORM STRENGTH: 40 MG
  4. NADROPARIN CALCIUM [Concomitant]
     Active Substance: NADROPARIN CALCIUM
     Indication: Product used for unknown indication
     Dosage: 5700IE=0,6ML 30 ST 2.1IJ?FORM STRENGTH: 5700 IU
  5. INNOHEP [Concomitant]
     Active Substance: TINZAPARIN SODIUM
     Indication: Product used for unknown indication
     Dosage: 14000IE=0,7ML WWS 10 ST 1.1IJ?FORM STRENGTH: 14000 IU
  6. PREDNISOLONE [Concomitant]
     Active Substance: PREDNISOLONE
     Indication: Product used for unknown indication
     Dosage: 1 ST M 1T?30 MG
  7. TRAMADOL HCL A [Concomitant]
     Indication: Product used for unknown indication
     Dosage: 120 ST 4.1C?FORM STRENGTH: 50 MG

REACTIONS (1)
  - Death [Fatal]

NARRATIVE: CASE EVENT DATE: 20201112
